FAERS Safety Report 6315601-3 (Version None)
Quarter: 2009Q3

REPORT INFORMATION
  Report Type: 
  Country: None (occurrence: None)
  Receive Date: 20090818
  Receipt Date: 20090805
  Transmission Date: 20100115
  Serious: Yes (Hospitalization)
  Sender: FDA-Public Use
  Company Number: 1000008189

PATIENT
  Age: 76 Year
  Sex: Female

DRUGS (10)
  1. MEMANTINE HCL [Suspect]
     Indication: DEMENTIA
     Dosage: 10 MG (10 MG, 1 IN 1 D), ORAL
     Route: 048
     Dates: end: 20090703
  2. LAMICTAL [Suspect]
     Indication: EPILEPSY
     Dosage: 100 MG (50 MG, 2 IN 1 D), ORAL
     Route: 048
     Dates: end: 20090703
  3. EQUANIL [Suspect]
     Indication: ANXIETY
     Dosage: 1 DOSAGE FORMS 91 DOSAGE FORMS, 1 IN 1 D), ORAL
     Route: 048
     Dates: end: 20090703
  4. LEVOTHYROX (TABLETS) [Concomitant]
  5. DIAMOX (TABLETS) [Concomitant]
  6. DIFFU K [Concomitant]
  7. HAVLANE [Concomitant]
  8. TARDYFERON [Concomitant]
  9. TIMOPTIC [Concomitant]
  10. AMLODIPINE [Concomitant]

REACTIONS (2)
  - DERMATITIS EXFOLIATIVE [None]
  - EOSINOPHILIA [None]
